FAERS Safety Report 8186231-6 (Version None)
Quarter: 2012Q1

REPORT INFORMATION
  Report Type: 
  Country: None (occurrence: None)
  Receive Date: 20120306
  Receipt Date: 20120228
  Transmission Date: 20120608
  Serious: No
  Sender: FDA-Public Use
  Company Number: US-PFIZER INC-2012053017

PATIENT
  Sex: Female

DRUGS (2)
  1. EFFEXOR XR [Suspect]
     Indication: DEPRESSION
     Dosage: 300 MG, 1X/DAY
     Route: 048
     Dates: start: 19970101
  2. EFFEXOR XR [Suspect]
     Dosage: UNK
     Route: 048
     Dates: end: 20120227

REACTIONS (4)
  - VOMITING [None]
  - DIZZINESS [None]
  - MALAISE [None]
  - BLOOD CHOLESTEROL INCREASED [None]
